FAERS Safety Report 17979505 (Version 1)
Quarter: 2020Q3

REPORT INFORMATION
  Report Type: Spontaneous
  Country: US (occurrence: US)
  Receive Date: 20200703
  Receipt Date: 20200703
  Transmission Date: 20201103
  Serious: No
  Sender: FDA-Public Use
  Company Number: US-SA-2020SA171304

PATIENT

DRUGS (1)
  1. DUPIXENT [Suspect]
     Active Substance: DUPILUMAB
     Dosage: 300 MG

REACTIONS (4)
  - Photophobia [Recovering/Resolving]
  - Keratitis [Recovering/Resolving]
  - Eye pain [Recovering/Resolving]
  - Ocular discomfort [Recovering/Resolving]
